FAERS Safety Report 15271303 (Version 1)
Quarter: 2018Q3

REPORT INFORMATION
  Report Type: Spontaneous
  Country: US (occurrence: US)
  Receive Date: 20180727
  Receipt Date: 20180727
  Transmission Date: 20181010
  Serious: Yes (Disabling)
  Sender: FDA-Public Use
  Company Number: None

PATIENT
  Age: 44 Year
  Sex: Female
  Weight: 71.1 kg

DRUGS (2)
  1. VITAMIN B12 [Concomitant]
     Active Substance: CYANOCOBALAMIN
  2. TRETINOIN CREAM, USP 0.05% [Suspect]
     Active Substance: TRETINOIN
     Indication: ACNE
     Dosage: ?          QUANTITY:1 THIN LAYER;OTHER FREQUENCY:EVERY OTHER NIGHT;?
     Route: 061
     Dates: start: 20161103, end: 20180506

REACTIONS (1)
  - Alopecia [None]

NARRATIVE: CASE EVENT DATE: 20180305
